FAERS Safety Report 8838506 (Version 2)
Quarter: 2012Q4

REPORT INFORMATION
  Report Type: Report from Study
  Country: CA (occurrence: CA)
  Receive Date: 20121012
  Receipt Date: 20121113
  Transmission Date: 20130627
  Serious: Yes (Hospitalization)
  Sender: FDA-Public Use
  Company Number: CA-ABBOTT-12P-028-0992119-00

PATIENT
  Age: 79 Year
  Sex: Female

DRUGS (2)
  1. HUMIRA [Suspect]
     Indication: RHEUMATOID ARTHRITIS
     Route: 058
     Dates: start: 20120326
  2. DILAUDID [Suspect]
     Indication: SPINAL FRACTURE
     Route: 048

REACTIONS (3)
  - Accidental overdose [Recovered/Resolved]
  - Hallucination [Recovered/Resolved]
  - Spinal fracture [Not Recovered/Not Resolved]
